FAERS Safety Report 6054726-7 (Version None)
Quarter: 2009Q1

REPORT INFORMATION
  Report Type: 
  Country: None (occurrence: None)
  Receive Date: 20090128
  Receipt Date: 20090119
  Transmission Date: 20090719
  Serious: Yes (Other)
  Sender: FDA-Public Use
  Company Number: JP-BRISTOL-MYERS SQUIBB COMPANY-14484547

PATIENT
  Age: 59 Year
  Sex: Male
  Weight: 76 kg

DRUGS (4)
  1. ERBITUX [Suspect]
     Indication: COLORECTAL CANCER RECURRENT
     Dosage: 14OCT08,740MG;21OCT08,460MG;28OCT08,04NOV08,11NOV08,RECENT INFUSION ON 06JAN08
     Route: 042
     Dates: start: 20081014
  2. POLARAMINE [Concomitant]
     Indication: PREMEDICATION
     Route: 042
  3. DECADRON [Concomitant]
     Indication: PREMEDICATION
     Route: 042
  4. ADALAT CC [Concomitant]
     Indication: HYPERTENSION
     Route: 048
     Dates: start: 20081021

REACTIONS (1)
  - CEREBELLAR INFARCTION [None]
